FAERS Safety Report 15424086 (Version 1)
Quarter: 2018Q3

REPORT INFORMATION
  Report Type: Spontaneous
  Country: US (occurrence: US)
  Receive Date: 20180914
  Receipt Date: 20180914
  Transmission Date: 20181010
  Serious: No
  Sender: FDA-Public Use
  Company Number: None

PATIENT
  Age: 50 Year
  Sex: Female

DRUGS (1)
  1. OLUMIANT [Suspect]
     Active Substance: BARICITINIB
     Dosage: ?          OTHER DOSE:1 TABLET;?
     Route: 048

REACTIONS (4)
  - Therapy cessation [None]
  - Headache [None]
  - Herpes zoster [None]
  - Blister [None]
